FAERS Safety Report 7394038-2 (Version None)
Quarter: 2011Q2

REPORT INFORMATION
  Report Type: 
  Country: None (occurrence: None)
  Receive Date: 20110405
  Receipt Date: 20110131
  Transmission Date: 20111010
  Serious: Yes (Hospitalization)
  Sender: FDA-Public Use
  Company Number: US-AMGEN-USASP2011006025

PATIENT

DRUGS (2)
  1. ANTINEOPLASTIC AGENTS [Concomitant]
     Dates: start: 20101102, end: 20101102
  2. NEULASTA [Suspect]
     Indication: CHEMOTHERAPY
     Dates: start: 20101102

REACTIONS (1)
  - PYREXIA [None]
